FAERS Safety Report 6710306-9 (Version None)
Quarter: 2010Q2

REPORT INFORMATION
  Report Type: 
  Country: None (occurrence: None)
  Receive Date: 20100504
  Receipt Date: 20100419
  Transmission Date: 20101027
  Serious: Yes (Other)
  Sender: FDA-Public Use
  Company Number: PHEH2008US04921

PATIENT
  Sex: Male

DRUGS (21)
  1. ZOMETA [Suspect]
     Dosage: 4 MG, UNK
     Route: 042
     Dates: start: 20050222
  2. BENICAR [Concomitant]
     Dosage: 40/25 MG QD
  3. COLACE [Concomitant]
     Dosage: 100 MG, BID
  4. METAMUCIL-2 [Concomitant]
     Dosage: UNK
  5. ZANTAC [Concomitant]
     Dosage: UNK
  6. PEPCID [Concomitant]
  7. ADVIL LIQUI-GELS [Concomitant]
  8. PERCOCET [Concomitant]
     Dosage: 5MG/325 MG
  9. DIPRIVAN [Concomitant]
     Dosage: 10 MG
  10. EPHEDRINE SULFATE [Concomitant]
     Dosage: UNK
  11. ROBINUL [Concomitant]
     Dosage: UNK
  12. ZEMURON [Concomitant]
     Dosage: 10 MG
  13. LIDOCAINE [Concomitant]
     Dosage: UNK
  14. FENTANYL CITRATE [Concomitant]
     Dosage: 0.05MG
  15. MIDAZOLAM HCL [Concomitant]
     Dosage: 2 MG
  16. MEPERIDINE HYDROCHLORIDE [Concomitant]
     Dosage: 50 MG
  17. PROMETHAZINE HCL [Concomitant]
     Dosage: 25 MG
  18. SODIUM CHLORIDE [Concomitant]
     Dosage: UNK
  19. DIAZEPAM [Concomitant]
     Dosage: 10 MG
  20. CITRUCEL [Concomitant]
  21. ATENOLOL [Concomitant]

REACTIONS (25)
  - ABDOMINAL PAIN [None]
  - ANAEMIA [None]
  - AORTIC VALVE INCOMPETENCE [None]
  - ASTHENIA [None]
  - BILE DUCT OBSTRUCTION [None]
  - BONE DEBRIDEMENT [None]
  - BONE DISORDER [None]
  - CHOLECYSTECTOMY [None]
  - CHOLECYSTITIS [None]
  - CHOLELITHIASIS [None]
  - CORONARY ARTERY STENOSIS [None]
  - DIABETES MELLITUS [None]
  - DYSLIPIDAEMIA [None]
  - ERUCTATION [None]
  - HUNGER [None]
  - METASTASIS [None]
  - MITRAL VALVE INCOMPETENCE [None]
  - MOUTH ULCERATION [None]
  - NAUSEA [None]
  - ORAL HERPES [None]
  - ORAL PAIN [None]
  - OSTEONECROSIS [None]
  - PAIN [None]
  - SINUS BRADYCARDIA [None]
  - VENTRICULAR HYPERTROPHY [None]
